FAERS Safety Report 8522546-7 (Version None)
Quarter: 2012Q3

REPORT INFORMATION
  Report Type: 
  Country: None (occurrence: None)
  Receive Date: 20120719
  Receipt Date: 20120716
  Transmission Date: 20120928
  Serious: No
  Sender: FDA-Public Use
  Company Number: US-PFIZER INC-2012171880

PATIENT
  Sex: Female
  Weight: 81.633 kg

DRUGS (5)
  1. ZOLOFT [Suspect]
     Indication: FIBROMYALGIA
  2. HUMIRA [Concomitant]
     Indication: ANKYLOSING SPONDYLITIS
     Dosage: UNK, FORTNIGHTLY
  3. METHOTREXATE [Concomitant]
     Indication: ANKYLOSING SPONDYLITIS
     Dosage: 15 MG, WEEKLY
  4. NEURONTIN [Suspect]
     Indication: FIBROMYALGIA
     Dosage: 100 MG, 3X/DAY
     Dates: start: 20120701
  5. ZOLOFT [Suspect]
     Indication: DEPRESSION
     Dosage: 50 MG, DAILY
     Dates: start: 20120701

REACTIONS (7)
  - VOMITING [None]
  - INSOMNIA [None]
  - NAUSEA [None]
  - RESTLESSNESS [None]
  - PAIN [None]
  - DIARRHOEA [None]
  - MUSCLE TIGHTNESS [None]
